FAERS Safety Report 5151498-5 (Version None)
Quarter: 2006Q4

REPORT INFORMATION
  Report Type: 
  Country: None (occurrence: None)
  Receive Date: 20061114
  Receipt Date: 20061114
  Transmission Date: 20070319
  Serious: No
  Sender: FDA-Public Use
  Company Number: None

PATIENT
  Age: 43 Year
  Sex: Female
  Weight: 108.8633 kg

DRUGS (1)
  1. EQUATE PAIN RELIEVER   500 MG     PERRIGO [Suspect]
     Indication: OSTEOARTHRITIS
     Dosage: 2 CAPLETS   2 TIMES DAILY

REACTIONS (3)
  - GASTRIC DISORDER [None]
  - NAUSEA [None]
  - PHARMACEUTICAL PRODUCT COMPLAINT [None]
